FAERS Safety Report 6031818-X (Version None)
Quarter: 2009Q1

REPORT INFORMATION
  Report Type: 
  Country: None (occurrence: None)
  Receive Date: 20090108
  Receipt Date: 20081231
  Transmission Date: 20090719
  Serious: Yes (Other)
  Sender: FDA-Public Use
  Company Number: US-JNJFOC-20090100575

PATIENT
  Age: 82 Year
  Sex: Female
  Weight: 78.02 kg

DRUGS (9)
  1. EXTRA STRENGTH TYLENOL [Suspect]
     Route: 048
  2. EXTRA STRENGTH TYLENOL [Suspect]
     Indication: ARTHRALGIA
     Route: 048
  3. DILTIAZEM [Concomitant]
     Indication: HYPERTENSION
  4. ENALAPRIL MALEATE [Concomitant]
     Indication: HYPERTENSION
  5. LASIX [Concomitant]
     Indication: FLUID RETENTION
  6. POTASSIUM CHLORIDE [Concomitant]
     Indication: NUTRITIONAL SUPPORT
  7. ZOCOR [Concomitant]
     Indication: BLOOD CHOLESTEROL INCREASED
  8. COUMADIN [Concomitant]
  9. COUMADIN [Concomitant]
     Indication: ATRIAL FIBRILLATION

REACTIONS (2)
  - DRUG INEFFECTIVE [None]
  - NEUROPATHY PERIPHERAL [None]
